FAERS Safety Report 4847987-0 (Version None)
Quarter: 2005Q4

REPORT INFORMATION
  Report Type: 
  Country: None (occurrence: None)
  Receive Date: 20051206
  Receipt Date: 20051128
  Transmission Date: 20060501
  Serious: Yes (Hospitalization)
  Sender: FDA-Public Use
  Company Number: US-2005-025040

PATIENT
  Age: 30 Year
  Sex: Female

DRUGS (2)
  1. BETASERON [Suspect]
     Indication: MULTIPLE SCLEROSIS
     Dosage: DOSE TITRATION TO 8MIU, EVERY 2D, SUBCUTANEOUS; 4MIU EVERY 2D, SUBCUTANEOUS
     Route: 058
     Dates: start: 20050727, end: 20051104
  2. BETASERON [Suspect]
     Indication: MULTIPLE SCLEROSIS
     Dosage: DOSE TITRATION TO 8MIU, EVERY 2D, SUBCUTANEOUS; 4MIU EVERY 2D, SUBCUTANEOUS
     Route: 058
     Dates: start: 20051104

REACTIONS (1)
  - ATRIAL FIBRILLATION [None]
